FAERS Safety Report 24115536 (Version 1)
Quarter: 2024Q3

REPORT INFORMATION
  Report Type: Spontaneous
  Country: US (occurrence: US)
  Receive Date: 20240721
  Receipt Date: 20240721
  Transmission Date: 20241017
  Serious: No
  Sender: NOVO NORDISK
  Company Number: US-NOVOPROD-1223428

PATIENT
  Sex: Female

DRUGS (1)
  1. WEGOVY [Suspect]
     Active Substance: SEMAGLUTIDE
     Indication: Product used for unknown indication
     Dosage: UNK
     Route: 058

REACTIONS (8)
  - Mesenteric lymphadenitis [Unknown]
  - Tachypnoea [Unknown]
  - Pyrexia [Unknown]
  - Lip haemorrhage [Unknown]
  - Dehydration [Unknown]
  - Dizziness [Unknown]
  - Abdominal pain [Unknown]
  - Tachycardia [Unknown]
